FAERS Safety Report 7900401-0 (Version None)
Quarter: 2011Q4

REPORT INFORMATION
  Report Type: 
  Country: None (occurrence: None)
  Receive Date: 20111108
  Receipt Date: 20111106
  Transmission Date: 20120403
  Serious: No
  Sender: FDA-Public Use
  Company Number: US-PFIZER INC-2011271197

PATIENT
  Sex: Male

DRUGS (2)
  1. CELEBREX [Suspect]
     Dosage: UNK
  2. ASPIRIN [Concomitant]
     Dosage: UNK

REACTIONS (1)
  - NAUSEA [None]
